FAERS Safety Report 8965339 (Version 1)
Quarter: 2012Q4

REPORT INFORMATION
  Report Type: 
  Country: DE (occurrence: DE)
  Receive Date: 20121213
  Receipt Date: 20121213
  Transmission Date: 20130627
  Serious: Yes (Hospitalization)
  Sender: FDA-Public Use
  Company Number: PHHY2012DE114082

PATIENT
  Sex: Female

DRUGS (5)
  1. GILENYA [Suspect]
     Indication: MULTIPLE SCLEROSIS
     Dosage: 0.5 mg, QD
     Route: 048
     Dates: start: 201108
  2. LEVOTHYROXINE [Concomitant]
     Indication: HYPOTHYROIDISM
     Dosage: 75 ug, daily
     Dates: end: 20121113
  3. LEVOTHYROXINE [Concomitant]
     Dosage: 100 ug, daily
     Dates: start: 20121114, end: 20121203
  4. LEVOTHYROXINE [Concomitant]
     Dosage: 125 ug, daily
     Dates: start: 20121204
  5. TIBOLONE [Concomitant]
     Indication: HORMONE REPLACEMENT THERAPY

REACTIONS (2)
  - Nervous system disorder [Recovering/Resolving]
  - Tri-iodothyronine free decreased [Recovering/Resolving]
